FAERS Safety Report 20909664 (Version 1)
Quarter: 2022Q2

REPORT INFORMATION
  Report Type: Spontaneous
  Country: BR (occurrence: None)
  Receive Date: 20220603
  Receipt Date: 20220603
  Transmission Date: 20220721
  Serious: Yes (Death, Hospitalization)
  Sender: FDA-Public Use
  Company Number: BR-ROCHE-3104700

PATIENT
  Age: 64 Year
  Sex: Male
  Weight: 79 kg

DRUGS (6)
  1. AVASTIN [Suspect]
     Active Substance: BEVACIZUMAB
     Indication: Rectal cancer
     Route: 065
  2. AVASTIN [Suspect]
     Active Substance: BEVACIZUMAB
     Route: 065
  3. VITAMIN C [Concomitant]
     Active Substance: ASCORBIC ACID
  4. ZOLPIDEM [Concomitant]
     Active Substance: ZOLPIDEM TARTRATE
  5. CAPECITABINE [Concomitant]
     Active Substance: CAPECITABINE
     Route: 048
  6. OXALIPLATIN [Concomitant]
     Active Substance: OXALIPLATIN

REACTIONS (3)
  - Pyrexia [Not Recovered/Not Resolved]
  - Cardiac arrest [Fatal]
  - Haemoptysis [Unknown]

NARRATIVE: CASE EVENT DATE: 20220511
